FAERS Safety Report 15777824 (Version 1)
Quarter: 2018Q4

REPORT INFORMATION
  Report Type: Spontaneous
  Country: TR (occurrence: TR)
  Receive Date: 20181231
  Receipt Date: 20181231
  Transmission Date: 20190205
  Serious: Yes (Hospitalization)
  Sender: FDA-Public Use
  Company Number: PHHY2018TR197491

PATIENT
  Age: 38 Year
  Sex: Female

DRUGS (11)
  1. OLANZAPINE. [Concomitant]
     Active Substance: OLANZAPINE
     Indication: BIPOLAR DISORDER
     Dosage: 40 MG, QD
     Route: 065
  2. LORAZEPAM. [Concomitant]
     Active Substance: LORAZEPAM
     Indication: BIPOLAR DISORDER
     Route: 065
  3. HALOPERIDOL. [Concomitant]
     Active Substance: HALOPERIDOL
     Indication: BIPOLAR DISORDER
     Route: 065
  4. VALPROIC ACID. [Suspect]
     Active Substance: VALPROIC ACID
     Indication: BIPOLAR DISORDER
     Dosage: 1000 MG, QD
     Route: 065
  5. BIPERIDENE [Concomitant]
     Active Substance: BIPERIDEN
     Indication: BIPOLAR DISORDER
     Dosage: 4 MG, QD
     Route: 065
  6. ZUCLOPENTHIXOL [Concomitant]
     Active Substance: ZUCLOPENTHIXOL
     Indication: BIPOLAR DISORDER
     Route: 065
  7. OXCARBAZEPINE. [Concomitant]
     Active Substance: OXCARBAZEPINE
     Dosage: 600 MG, QD
     Route: 065
  8. OXCARBAZEPINE. [Concomitant]
     Active Substance: OXCARBAZEPINE
     Indication: BIPOLAR DISORDER
     Dosage: 800 MG, QD
     Route: 065
  9. QUETIAPINE. [Concomitant]
     Active Substance: QUETIAPINE
     Indication: BIPOLAR DISORDER
     Dosage: 900 MG, QD
     Route: 065
  10. OLANZAPINE. [Concomitant]
     Active Substance: OLANZAPINE
     Dosage: 30 MG, QD
     Route: 065
  11. QUETIAPINE. [Concomitant]
     Active Substance: QUETIAPINE
     Dosage: 300 MG, QD
     Route: 065

REACTIONS (6)
  - Hyperammonaemic encephalopathy [Recovering/Resolving]
  - Sedation [Recovering/Resolving]
  - Eye disorder [Recovering/Resolving]
  - Altered state of consciousness [Recovering/Resolving]
  - Lethargy [Recovering/Resolving]
  - Unresponsive to stimuli [Recovering/Resolving]
